FAERS Safety Report 10366545 (Version 1)
Quarter: 2014Q3

REPORT INFORMATION
  Report Type: Report from Study
  Country: CZ (occurrence: CZ)
  Receive Date: 20140806
  Receipt Date: 20140806
  Transmission Date: 20150326
  Serious: Yes (Death, Other)
  Sender: FDA-Public Use
  Company Number: CZ-PFIZER INC-2014215834

PATIENT
  Age: 73 Year
  Sex: Male

DRUGS (1)
  1. PROVERA [Suspect]
     Active Substance: MEDROXYPROGESTERONE ACETATE
     Indication: RENAL CELL CARCINOMA

REACTIONS (6)
  - Circulatory collapse [Unknown]
  - Cardiac arrest [Unknown]
  - Loss of consciousness [Unknown]
  - Fall [Unknown]
  - Death [Fatal]
  - Dyspnoea [Unknown]

NARRATIVE: CASE EVENT DATE: 20140714
